FAERS Safety Report 5164707-3 (Version None)
Quarter: 2006Q4

REPORT INFORMATION
  Report Type: 
  Country: None (occurrence: None)
  Receive Date: 20061205
  Receipt Date: 20060613
  Transmission Date: 20070319
  Serious: Yes (Hospitalization, Disabling)
  Sender: FDA-Public Use
  Company Number: US-ROCHE-451852

PATIENT
  Age: 21 Year
  Sex: Male
  Weight: 74.8 kg

DRUGS (1)
  1. ACCUTANE [Suspect]
     Indication: ACNE
     Route: 065
     Dates: start: 19990815, end: 20000215

REACTIONS (27)
  - ANAEMIA HAEMOLYTIC AUTOIMMUNE [None]
  - ANXIETY [None]
  - ARTHRALGIA [None]
  - BACK PAIN [None]
  - BLOOD GLUCOSE INCREASED [None]
  - CARDIAC DISORDER [None]
  - COLITIS ULCERATIVE [None]
  - CONVULSION [None]
  - CROHN'S DISEASE [None]
  - DIZZINESS [None]
  - GALLBLADDER POLYP [None]
  - GASTROINTESTINAL INJURY [None]
  - GASTROOESOPHAGEAL REFLUX DISEASE [None]
  - HAEMOLYTIC ANAEMIA [None]
  - HAEMORRHAGIC DIATHESIS [None]
  - INFLAMMATORY BOWEL DISEASE [None]
  - INSOMNIA [None]
  - INTESTINAL HAEMORRHAGE [None]
  - JAUNDICE [None]
  - MIGRAINE [None]
  - NECK INJURY [None]
  - PNEUMONIA [None]
  - SINUS BRADYCARDIA [None]
  - SOMNOLENCE [None]
  - SPLENOMEGALY [None]
  - THERAPY NON-RESPONDER [None]
  - VENTRICULAR EXTRASYSTOLES [None]
